FAERS Safety Report 7712701-8 (Version None)
Quarter: 2011Q3

REPORT INFORMATION
  Report Type: 
  Country: None (occurrence: None)
  Receive Date: 20110826
  Receipt Date: 20110817
  Transmission Date: 20111222
  Serious: Yes (Death, Hospitalization)
  Sender: FDA-Public Use
  Company Number: US-GLAXOSMITHKLINE-A0795056A

PATIENT
  Age: 52 Year
  Sex: Male
  Weight: 72.7 kg

DRUGS (11)
  1. ASPIRIN [Concomitant]
  2. METFORMIN HCL [Concomitant]
  3. ASCORBIC ACID [Concomitant]
  4. LORATADINE [Concomitant]
  5. TYLENOL-500 [Concomitant]
  6. AVANDIA [Suspect]
     Indication: DIABETES MELLITUS
     Dosage: 8MG TWICE PER DAY
     Route: 048
     Dates: start: 19980901, end: 20090303
  7. GLIPIZIDE [Concomitant]
  8. LOVASTATIN [Concomitant]
  9. GABAPENTIN [Concomitant]
  10. IBUPROFEN [Concomitant]
  11. QUINAPRIL HCL [Concomitant]

REACTIONS (2)
  - ARTERIOSCLEROSIS [None]
  - MYOCARDIAL INFARCTION [None]
